FAERS Safety Report 7436167-0 (Version None)
Quarter: 2011Q2

REPORT INFORMATION
  Report Type: 
  Country: None (occurrence: None)
  Receive Date: 20110425
  Receipt Date: 20110422
  Transmission Date: 20111010
  Serious: Yes (Hospitalization)
  Sender: FDA-Public Use
  Company Number: US-ABBOTT-11P-163-0721416-00

PATIENT
  Age: 72 Year
  Sex: Male
  Weight: 86.26 kg

DRUGS (4)
  1. NIASPAN [Suspect]
     Dates: start: 20080101
  2. PLAVIX [Concomitant]
     Indication: PRODUCT USED FOR UNKNOWN INDICATION
  3. ASPIRIN [Suspect]
     Indication: PRODUCT USED FOR UNKNOWN INDICATION
     Dates: end: 20100101
  4. NIASPAN [Suspect]
     Indication: BLOOD CHOLESTEROL
     Dates: start: 20070101, end: 20080101

REACTIONS (5)
  - ULCER [None]
  - SKIN BURNING SENSATION [None]
  - FAECES DISCOLOURED [None]
  - FLUSHING [None]
  - PRURITUS [None]
